FAERS Safety Report 6697062-8 (Version None)
Quarter: 2010Q2

REPORT INFORMATION
  Report Type: 
  Country: None (occurrence: None)
  Receive Date: 20100426
  Receipt Date: 20100414
  Transmission Date: 20101027
  Serious: Yes (Hospitalization)
  Sender: FDA-Public Use
  Company Number: PHHY2010US23568

PATIENT
  Sex: Female

DRUGS (11)
  1. ZOMETA [Suspect]
  2. REVLIMID [Suspect]
     Indication: MULTIPLE MYELOMA
     Dosage: 25 MG, DAILY
     Dates: start: 20061001, end: 20070601
  3. REVLIMID [Suspect]
     Dosage: 25 MG, DAILY
     Dates: start: 20091001
  4. WARFARIN SODIUM [Concomitant]
  5. FLUCONAZOLE [Concomitant]
     Indication: PROPHYLAXIS
  6. DEXAMETHASONE [Concomitant]
  7. LEVOTHYROXINE [Concomitant]
  8. MULTI-VITAMINS [Concomitant]
  9. PROTONIX [Concomitant]
  10. LACTOBACILLUS ACIDOPHILUS [Concomitant]
  11. CLINDAMYCIN HYDROCHLORIDE [Concomitant]

REACTIONS (26)
  - ARTHRALGIA [None]
  - ARTHRITIS [None]
  - ARTHRITIS BACTERIAL [None]
  - BLOOD POTASSIUM DECREASED [None]
  - BONE LESION [None]
  - CELLULITIS STREPTOCOCCAL [None]
  - CHILLS [None]
  - DEHYDRATION [None]
  - DIARRHOEA [None]
  - ERYTHEMA [None]
  - FAECAL INCONTINENCE [None]
  - HYPOPERFUSION [None]
  - HYPOVOLAEMIA [None]
  - JOINT SWELLING [None]
  - NAUSEA [None]
  - NEPHROPATHY TOXIC [None]
  - OEDEMA PERIPHERAL [None]
  - OSTEOARTHRITIS [None]
  - OXYGEN SATURATION DECREASED [None]
  - OXYGEN SUPPLEMENTATION [None]
  - PAIN [None]
  - PAIN IN EXTREMITY [None]
  - PYREXIA [None]
  - RENAL FAILURE [None]
  - SKIN ULCER [None]
  - SYNOVIAL CYST [None]
